FAERS Safety Report 9664710 (Version 1)
Quarter: 2013Q4

REPORT INFORMATION
  Report Type: Spontaneous
  Country: IT (occurrence: None)
  Receive Date: 20131031
  Receipt Date: 20131031
  Transmission Date: 20140711
  Serious: Yes (Other)
  Sender: FDA-Public Use
  Company Number: FK201304785

PATIENT
  Age: 60 Year
  Sex: Female

DRUGS (1)
  1. ANASTROZOLE (MANUFACTURER UNKNOWN) (ANASTROZOLE) (ANASTROZOLE) [Suspect]
     Indication: BREAST CANCER

REACTIONS (1)
  - Sjogren^s syndrome [None]
